FAERS Safety Report 6576620-5 (Version None)
Quarter: 2010Q1

REPORT INFORMATION
  Report Type: 
  Country: None (occurrence: None)
  Receive Date: 20100210
  Receipt Date: 20100205
  Transmission Date: 20100710
  Serious: Yes (Death, Life-Threatening, Hospitalization, Other)
  Sender: FDA-Public Use
  Company Number: BE-BRISTOL-MYERS SQUIBB COMPANY-14900468

PATIENT
  Age: 50 Year
  Sex: Male
  Weight: 64 kg

DRUGS (3)
  1. CETUXIMAB [Suspect]
     Indication: NON-SMALL CELL LUNG CANCER
     Dosage: RECENT INF:02DEC09
     Route: 042
     Dates: start: 20091106
  2. CISPLATIN [Suspect]
     Indication: NON-SMALL CELL LUNG CANCER
     Dosage: RECENT INF:02DEC09 ON DAY 1 OF 21 CYCLE
     Route: 042
     Dates: start: 20091106
  3. GEMCITABINE [Suspect]
     Indication: NON-SMALL CELL LUNG CANCER
     Dosage: RECENT INF;02DEC09 DAY 1,8 OF 21 CYCLE
     Route: 042
     Dates: start: 20091106

REACTIONS (3)
  - LOBAR PNEUMONIA [None]
  - PYELONEPHRITIS [None]
  - RENAL FAILURE [None]
